FAERS Safety Report 25933555 (Version 1)
Quarter: 2025Q4

REPORT INFORMATION
  Report Type: Spontaneous
  Country: US (occurrence: US)
  Receive Date: 20251017
  Receipt Date: 20251017
  Transmission Date: 20260118
  Serious: No
  Sender: Kenvue
  Company Number: US-KENVUE-20251001026

PATIENT
  Age: 38 Year
  Sex: Female

DRUGS (1)
  1. WOMENS ROGAINE UNSCENTED [Suspect]
     Active Substance: MINOXIDIL
     Indication: Alopecia
     Dosage: FOLLOW THE INSTRUCTION HALF A CAPFUL
     Route: 061
     Dates: start: 20251001, end: 202510

REACTIONS (2)
  - Application site pain [Recovering/Resolving]
  - Application site erythema [Recovering/Resolving]

NARRATIVE: CASE EVENT DATE: 20251001
